FAERS Safety Report 23865531 (Version 2)
Quarter: 2024Q2

REPORT INFORMATION
  Report Type: Spontaneous
  Country: IT (occurrence: IT)
  Receive Date: 20240517
  Receipt Date: 20240524
  Transmission Date: 20240716
  Serious: Yes (Other)
  Sender: FDA-Public Use
  Company Number: IT-CHIESI-2024CHF01920

PATIENT
  Age: 88 Year
  Sex: Female

DRUGS (1)
  1. FERRIPROX [Suspect]
     Active Substance: DEFERIPRONE
     Indication: Product used for unknown indication
     Dosage: 1000 MILLIGRAM, TID
     Route: 065
     Dates: start: 20240402, end: 20240402

REACTIONS (6)
  - Sudden onset of sleep [Unknown]
  - Imperception [Unknown]
  - Presyncope [Unknown]
  - Presyncope [Unknown]
  - Hypotension [Recovered/Resolved]
  - Intentional dose omission [Recovered/Resolved]

NARRATIVE: CASE EVENT DATE: 20240402
